FAERS Safety Report 8315816-9 (Version None)
Quarter: 2012Q2

REPORT INFORMATION
  Report Type: 
  Country: None (occurrence: None)
  Receive Date: 20120427
  Receipt Date: 20120417
  Transmission Date: 20120825
  Serious: Yes (Death)
  Sender: FDA-Public Use
  Company Number: AR-AMGEN-ARGCT2011014528

PATIENT
  Age: 59 Year
  Sex: Female
  Weight: 67.7 kg

DRUGS (8)
  1. MEPREDNISONE [Concomitant]
     Indication: ARTHRITIS
     Dosage: UNK
     Dates: start: 20091201
  2. IBANDRONATE SODIUM [Concomitant]
     Indication: OSTEOPOROSIS
     Dosage: UNK
     Dates: start: 20100801
  3. METHOTREXATE SODIUM [Concomitant]
     Dosage: 15 MG, WEEKLY
     Route: 048
     Dates: start: 20100201, end: 20110221
  4. CALCIUM [Concomitant]
     Indication: OSTEOPOROSIS
     Dosage: UNK
     Dates: start: 20070101
  5. ETANERCEPT [Suspect]
     Indication: RHEUMATOID ARTHRITIS
     Dosage: 50 MG, QWK
     Route: 058
     Dates: start: 20100201, end: 20110221
  6. METHOTREXATE SODIUM [Concomitant]
     Indication: RHEUMATOID ARTHRITIS
     Dosage: 15 MG, WEEKLY
     Route: 048
     Dates: start: 20100201, end: 20100221
  7. IBUPROFEN [Concomitant]
     Indication: ARTHRITIS
     Dosage: UNK
     Dates: start: 20090101
  8. FOLIC ACID [Concomitant]
     Indication: PROPHYLAXIS
     Dosage: UNK
     Dates: start: 20070101

REACTIONS (1)
  - SEPTIC SHOCK [None]
